FAERS Safety Report 12384039 (Version 1)
Quarter: 2016Q2

REPORT INFORMATION
  Report Type: Report from Study
  Country: DE (occurrence: DE)
  Receive Date: 20160519
  Receipt Date: 20160519
  Transmission Date: 20160815
  Serious: Yes (Other)
  Sender: FDA-Public Use
  Company Number: DE-ROCHE-1272062

PATIENT

DRUGS (3)
  1. RIBAVIRIN. [Suspect]
     Active Substance: RIBAVIRIN
     Indication: HEPATITIS C
     Dosage: 1000 MG PER DAY (FOR PATIENTS WITH A BODY WEIGHT OF LESS THAN 75 KG) OR 1200 MG PER DAY (FOR THOSE W
     Route: 065
  2. FALDAPREVIR [Suspect]
     Active Substance: FALDAPREVIR
     Indication: HEPATITIS C
     Route: 065
  3. DELEOBUVIR [Suspect]
     Active Substance: DELEOBUVIR
     Indication: HEPATITIS C
     Dosage: THREE TIMES DAILY FOR 16 WEEKS, 28 WEEKS OR 40 WEEKS OR TWICE DAILY FOR 28 WEEKS
     Route: 065

REACTIONS (6)
  - Photosensitivity reaction [Unknown]
  - Haemolytic anaemia [Unknown]
  - Cholecystitis acute [Unknown]
  - Skin disorder [Unknown]
  - Infection [Unknown]
  - B-cell lymphoma [Unknown]
